FAERS Safety Report 16582945 (Version 1)
Quarter: 2019Q3

REPORT INFORMATION
  Report Type: Spontaneous
  Country: US (occurrence: US)
  Receive Date: 20190717
  Receipt Date: 20190717
  Transmission Date: 20191004
  Serious: No
  Sender: FDA-Public Use
  Company Number: US-JNJFOC-20190712084

PATIENT
  Age: 83 Year
  Sex: Male
  Weight: 88.53 kg

DRUGS (1)
  1. TYLENOL [Suspect]
     Active Substance: ACETAMINOPHEN
     Indication: BACK PAIN
     Dosage: 2 TABLETS AS NEEDED FOR PAIN,
     Route: 048
     Dates: end: 20190708

REACTIONS (1)
  - Drug ineffective [Unknown]
